FAERS Safety Report 6304028-6 (Version None)
Quarter: 2009Q3

REPORT INFORMATION
  Report Type: 
  Country: None (occurrence: None)
  Receive Date: 20090810
  Receipt Date: 20090731
  Transmission Date: 20100115
  Serious: Yes (Hospitalization)
  Sender: FDA-Public Use
  Company Number: JP-PFIZER INC-2009250334

PATIENT
  Age: 73 Year

DRUGS (7)
  1. SUNITINIB MALATE [Suspect]
     Indication: GASTROINTESTINAL STROMAL TUMOUR
     Dosage: 50 MG, 1X/DAY
     Route: 048
     Dates: start: 20090617, end: 20090629
  2. PARIET [Concomitant]
     Dosage: UNK
     Route: 048
  3. ALDACTONE [Concomitant]
     Route: 048
     Dates: end: 20090629
  4. LASIX [Concomitant]
     Route: 048
     Dates: end: 20090629
  5. FERROMIA [Concomitant]
     Dosage: UNK
     Route: 048
  6. SODIUM ALGINATE [Concomitant]
     Dosage: UNK
     Route: 048
  7. PURSENNID [Concomitant]
     Route: 048
     Dates: end: 20090628

REACTIONS (7)
  - COLITIS [None]
  - DEHYDRATION [None]
  - DISSEMINATED INTRAVASCULAR COAGULATION [None]
  - HYPONATRAEMIA [None]
  - LIVER DISORDER [None]
  - PLATELET COUNT DECREASED [None]
  - RENAL DISORDER [None]
